FAERS Safety Report 21228778 (Version 2)
Quarter: 2022Q3

REPORT INFORMATION
  Report Type: Spontaneous
  Country: US (occurrence: None)
  Receive Date: 20220818
  Receipt Date: 20220929
  Transmission Date: 20221027
  Serious: Yes (Other)
  Sender: FDA-Public Use
  Company Number: 2022A285292

PATIENT
  Sex: Male
  Weight: 102.5 kg

DRUGS (1)
  1. BYDUREON BCISE [Suspect]
     Active Substance: EXENATIDE
     Indication: Diabetes mellitus
     Route: 058

REACTIONS (4)
  - Dementia [Not Recovered/Not Resolved]
  - Device leakage [Unknown]
  - Drug delivery system malfunction [Unknown]
  - Needle issue [Unknown]
